FAERS Safety Report 7407615-7 (Version None)
Quarter: 2011Q2

REPORT INFORMATION
  Report Type: 
  Country: None (occurrence: None)
  Receive Date: 20110404
  Receipt Date: 20110325
  Transmission Date: 20111010
  Serious: Yes (Death)
  Sender: FDA-Public Use
  Company Number: LEO-2011-00306

PATIENT
  Sex: Female

DRUGS (2)
  1. HEPARIN [Concomitant]
  2. INNOHEP [Suspect]
     Indication: DEEP VEIN THROMBOSIS
     Dosage: 18000 IU (18000 IU, 1 IN 1 D, SUBCUTANEOUS, 9000 IU (4500 IU, 2 IN 1 D, SUBCUTANEOUS
     Route: 058

REACTIONS (2)
  - PULMONARY EMBOLISM [None]
  - CARDIAC ARREST [None]
